FAERS Safety Report 13291211 (Version 1)
Quarter: 2017Q1

REPORT INFORMATION
  Report Type: Spontaneous
  Country: US (occurrence: US)
  Receive Date: 20170302
  Receipt Date: 20170302
  Transmission Date: 20170428
  Serious: Yes (Other)
  Sender: FDA-Public Use
  Company Number: None

PATIENT
  Sex: Female
  Weight: 72 kg

DRUGS (4)
  1. MOBIC [Concomitant]
     Active Substance: MELOXICAM
  2. IRON TABLETS TABLET [Concomitant]
     Active Substance: IRON
  3. IBUPROFEN. [Concomitant]
     Active Substance: IBUPROFEN
  4. MIRALAX [Suspect]
     Active Substance: POLYETHYLENE GLYCOL 3350
     Indication: CONSTIPATION
     Route: 048

REACTIONS (2)
  - Aggression [None]
  - Mood swings [None]
